FAERS Safety Report 8773910 (Version 1)
Quarter: 2012Q4

REPORT INFORMATION
  Report Type: 
  Country: CA (occurrence: CA)
  Receive Date: 20120907
  Receipt Date: 20120907
  Transmission Date: 20130627
  Serious: Yes (Life-Threatening)
  Sender: FDA-Public Use
  Company Number: CA-009507513-1206USA02143

PATIENT

DRUGS (3)
  1. SINGULAIR [Suspect]
     Indication: URTICARIA
     Dosage: 10 mg, UNK
     Route: 048
     Dates: start: 20110906
  2. REACTINE [Concomitant]
  3. ZANTAC [Concomitant]

REACTIONS (2)
  - Suicidal ideation [Recovered/Resolved]
  - Depression [Recovered/Resolved]
